FAERS Safety Report 5232697-0 (Version None)
Quarter: 2007Q1

REPORT INFORMATION
  Report Type: 
  Country: None (occurrence: None)
  Receive Date: 20070207
  Receipt Date: 20070129
  Transmission Date: 20070707
  Serious: Yes (Disabling)
  Sender: FDA-Public Use
  Company Number: 2007SE00080

PATIENT
  Age: 18534 Day
  Sex: Male

DRUGS (2)
  1. ATACAND [Suspect]
     Indication: HYPERTENSION
     Route: 048
     Dates: start: 20030401
  2. ZANIDIP [Concomitant]
     Indication: HYPERTENSION
     Route: 048
     Dates: start: 20031001

REACTIONS (1)
  - CHRONIC MYELOID LEUKAEMIA [None]
